FAERS Safety Report 9648512 (Version 2)
Quarter: 2013Q4

REPORT INFORMATION
  Report Type: Spontaneous
  Country: DE (occurrence: DE)
  Receive Date: 20131028
  Receipt Date: 20131226
  Transmission Date: 20140711
  Serious: Yes (Other)
  Sender: FDA-Public Use
  Company Number: DE-BAYER-2013-128753

PATIENT
  Sex: Male

DRUGS (1)
  1. GADOVIST [Suspect]
     Dosage: UNK

REACTIONS (1)
  - Blood creatinine increased [None]
